FAERS Safety Report 5063183-9 (Version None)
Quarter: 2006Q3

REPORT INFORMATION
  Report Type: 
  Country: None (occurrence: None)
  Receive Date: 20060724
  Receipt Date: 20060724
  Transmission Date: 20061208
  Serious: Yes (Other)
  Sender: FDA-Public Use
  Company Number: None

PATIENT
  Age: 52 Year
  Sex: Female
  Weight: 71.6683 kg

DRUGS (2)
  1. REQUIP [Suspect]
     Indication: PERIODIC LIMB MOVEMENT DISORDER
     Dosage: 1 MG ONCE A DAY PO
     Route: 048
     Dates: start: 20060428, end: 20060526
  2. REQUIP [Suspect]
     Indication: RESTLESS LEGS SYNDROME
     Dosage: 1 MG ONCE A DAY PO
     Route: 048
     Dates: start: 20060428, end: 20060526

REACTIONS (5)
  - ANHEDONIA [None]
  - CRYING [None]
  - DEPRESSION [None]
  - MENTAL DISORDER [None]
  - SOCIAL AVOIDANT BEHAVIOUR [None]
